FAERS Safety Report 24917468 (Version 1)
Quarter: 2025Q1

REPORT INFORMATION
  Report Type: Spontaneous
  Country: US (occurrence: US)
  Receive Date: 20250203
  Receipt Date: 20250203
  Transmission Date: 20250408
  Serious: No
  Sender: LUNDBECK
  Company Number: US-LUNDBECK-DKLU4009574

PATIENT

DRUGS (1)
  1. VYEPTI [Suspect]
     Active Substance: EPTINEZUMAB-JJMR
     Indication: Migraine
     Route: 041

REACTIONS (6)
  - Swelling face [Unknown]
  - Lip swelling [Unknown]
  - Nasal oedema [Unknown]
  - Dysphagia [Unknown]
  - Pruritus [Unknown]
  - Dysphonia [Unknown]

NARRATIVE: CASE EVENT DATE: 20250116
